FAERS Safety Report 6969611-3 (Version None)
Quarter: 2010Q3

REPORT INFORMATION
  Report Type: 
  Country: None (occurrence: None)
  Receive Date: 20100907
  Receipt Date: 20100827
  Transmission Date: 20110219
  Serious: Yes (Other)
  Sender: FDA-Public Use
  Company Number: US-AMGEN-QUU427928

PATIENT
  Sex: Female
  Weight: 68.9 kg

DRUGS (3)
  1. NPLATE [Suspect]
     Indication: IDIOPATHIC THROMBOCYTOPENIC PURPURA
     Route: 058
     Dates: start: 20091120, end: 20100721
  2. PREDNISONE [Concomitant]
     Route: 048
     Dates: start: 20091201
  3. PROMACTA [Concomitant]
     Dates: start: 20100101

REACTIONS (7)
  - ANAEMIA [None]
  - BONE MARROW RETICULIN FIBROSIS [None]
  - CONTUSION [None]
  - DRUG INEFFECTIVE [None]
  - HAEMORRHAGE [None]
  - RED BLOOD CELL ABNORMALITY [None]
  - THERAPEUTIC RESPONSE DECREASED [None]
